FAERS Safety Report 6940972-4 (Version None)
Quarter: 2010Q3

REPORT INFORMATION
  Report Type: 
  Country: None (occurrence: None)
  Receive Date: 20100825
  Receipt Date: 20100817
  Transmission Date: 20110219
  Serious: Yes (Other)
  Sender: FDA-Public Use
  Company Number: A0876355A

PATIENT
  Age: 74 Year
  Sex: Female

DRUGS (11)
  1. VERAMYST [Suspect]
     Indication: RESPIRATORY TRACT CONGESTION
     Dosage: 1SPR AT NIGHT
     Route: 045
     Dates: end: 20100811
  2. PLAVIX [Suspect]
     Indication: PRODUCT USED FOR UNKNOWN INDICATION
     Dosage: 75MG PER DAY
     Dates: start: 20100323
  3. ADVAIR DISKUS 100/50 [Concomitant]
  4. SIMVASTATIN [Concomitant]
  5. LISINOPRIL [Concomitant]
  6. DETROL [Concomitant]
  7. ACTONEL [Concomitant]
  8. FOLIC ACID [Concomitant]
  9. METHOTREXATE [Concomitant]
  10. ASPIRIN [Concomitant]
  11. RANITIDINE [Concomitant]

REACTIONS (4)
  - BLOOD PRESSURE INCREASED [None]
  - EPISTAXIS [None]
  - HAEMORRHAGE [None]
  - INFECTION [None]
